FAERS Safety Report 24136699 (Version 1)
Quarter: 2024Q3

REPORT INFORMATION
  Report Type: Spontaneous
  Country: US (occurrence: US)
  Receive Date: 20240725
  Receipt Date: 20240725
  Transmission Date: 20241017
  Serious: No
  Sender: BAUSCH AND LOMB
  Company Number: US-BAUSCH-BL-2024-010561

PATIENT
  Sex: Male

DRUGS (1)
  1. PYRIDOSTIGMINE BROMIDE [Suspect]
     Active Substance: PYRIDOSTIGMINE BROMIDE
     Indication: Myasthenia gravis
     Route: 065

REACTIONS (4)
  - Ill-defined disorder [Unknown]
  - Gastrointestinal disorder [Unknown]
  - Diarrhoea [Unknown]
  - Therapeutic product effect incomplete [Unknown]
